FAERS Safety Report 16263901 (Version 1)
Quarter: 2019Q2

REPORT INFORMATION
  Report Type: Report from Study
  Country: US (occurrence: US)
  Receive Date: 20190502
  Receipt Date: 20190502
  Transmission Date: 20190711
  Serious: Yes (Hospitalization, Other)
  Sender: FDA-Public Use
  Company Number: US-ROCHE-2119449

PATIENT
  Age: 18 Year
  Sex: Female
  Weight: 89.44 kg

DRUGS (15)
  1. PREDNISONE. [Concomitant]
     Active Substance: PREDNISONE
     Route: 065
  2. BENADRYL [Concomitant]
     Active Substance: DIPHENHYDRAMINE HYDROCHLORIDE
     Route: 048
  3. METHYLPREDNISOLONE. [Concomitant]
     Active Substance: METHYLPREDNISOLONE
     Route: 048
  4. PROVENTIL HFA [SALBUTAMOL] [Concomitant]
     Dosage: 90 MCG/ ACTUATION INHALATION HFA INHALER
     Route: 065
  5. CLARITIN [Concomitant]
     Active Substance: LORATADINE
  6. XOLAIR [Suspect]
     Active Substance: OMALIZUMAB
     Indication: IDIOPATHIC URTICARIA
     Route: 058
     Dates: start: 20180425
  7. RANITIDINE HCL [Concomitant]
     Active Substance: RANITIDINE HYDROCHLORIDE
     Route: 048
  8. SINGULAIR [Concomitant]
     Active Substance: MONTELUKAST SODIUM
     Route: 048
  9. PREDNISONE. [Concomitant]
     Active Substance: PREDNISONE
     Route: 065
  10. HYDROXYZINE HCL [Concomitant]
     Active Substance: HYDROXYZINE HYDROCHLORIDE
     Route: 048
  11. MIDODRINE [Concomitant]
     Active Substance: MIDODRINE
     Route: 048
  12. ZYRTEC [Concomitant]
     Active Substance: CETIRIZINE HYDROCHLORIDE
     Route: 048
  13. ALBUTEROL SULFATE. [Concomitant]
     Active Substance: ALBUTEROL SULFATE
     Dosage: 2.5 MG/ 3ML (0.083 %) INHALATION SOLUTION FOR NEBULIZATION.
     Route: 065
  14. TRAMADOL. [Concomitant]
     Active Substance: TRAMADOL
     Route: 048
  15. SALINE [SODIUM CHLORIDE] [Concomitant]
     Active Substance: SODIUM CHLORIDE

REACTIONS (16)
  - Urticaria [Recovering/Resolving]
  - Feeling abnormal [Recovering/Resolving]
  - Throat tightness [Unknown]
  - Anaphylactic reaction [Unknown]
  - Arthralgia [Recovering/Resolving]
  - Flushing [Recovering/Resolving]
  - Pruritus [Recovering/Resolving]
  - Diarrhoea [Recovering/Resolving]
  - Accident [Unknown]
  - Pain [Recovering/Resolving]
  - Burning sensation [Recovering/Resolving]
  - Asthenia [Recovering/Resolving]
  - Cushingoid [Unknown]
  - Wheezing [Unknown]
  - Cough [Unknown]
  - Fatigue [Recovering/Resolving]

NARRATIVE: CASE EVENT DATE: 20180425
